FAERS Safety Report 17478928 (Version 4)
Quarter: 2020Q2

REPORT INFORMATION
  Report Type: Spontaneous
  Country: US (occurrence: US)
  Receive Date: 20200228
  Receipt Date: 20200623
  Transmission Date: 20200713
  Serious: No
  Sender: FDA-Public Use
  Company Number: US-SHIRE-US202007805

PATIENT
  Sex: Female

DRUGS (5)
  1. GATTEX [Suspect]
     Active Substance: TEDUGLUTIDE\WATER
     Indication: SHORT-BOWEL SYNDROME
     Dosage: 1X PER DAY, EVERY DAY AT NIGHT BEFORE BED DOSE 3.3, 1X/DAY:QD
     Route: 058
  2. IRON [Concomitant]
     Active Substance: IRON
     Indication: PRODUCT USED FOR UNKNOWN INDICATION
  3. GATTEX [Suspect]
     Active Substance: TEDUGLUTIDE\WATER
     Dosage: UNK, UNKNOWN
     Route: 058
     Dates: start: 201512
  4. COLESTIPOL [Concomitant]
     Active Substance: COLESTIPOL
     Indication: PRODUCT USED FOR UNKNOWN INDICATION
  5. DEXLANSOPRAZOLE [Concomitant]
     Active Substance: DEXLANSOPRAZOLE
     Indication: GASTROOESOPHAGEAL REFLUX DISEASE

REACTIONS (9)
  - Pain [Unknown]
  - Swelling [Unknown]
  - Accident [Recovering/Resolving]
  - Contusion [Unknown]
  - Melanocytic naevus [Unknown]
  - Therapeutic product effect delayed [Unknown]
  - Hypertonic bladder [Recovering/Resolving]
  - Syringe issue [Recovered/Resolved]
  - Asthenia [Unknown]
